FAERS Safety Report 12289963 (Version 1)
Quarter: 2016Q2

REPORT INFORMATION
  Report Type: Spontaneous
  Country: US (occurrence: None)
  Receive Date: 20160420
  Receipt Date: 20160420
  Transmission Date: 20160815
  Serious: Yes (Life-Threatening)
  Sender: FDA-Public Use
  Company Number: None

PATIENT
  Age: 46 Year
  Sex: Female
  Weight: 109.77 kg

DRUGS (1)
  1. OLAPARIB, 50MG [Suspect]
     Active Substance: OLAPARIB
     Indication: OVARIAN CANCER
     Route: 048
     Dates: start: 20160118

REACTIONS (2)
  - Anaemia [None]
  - Fatigue [None]

NARRATIVE: CASE EVENT DATE: 20160310
